FAERS Safety Report 23052694 (Version 1)
Quarter: 2023Q4

REPORT INFORMATION
  Report Type: Spontaneous
  Country: CA (occurrence: CA)
  Receive Date: 20231011
  Receipt Date: 20231011
  Transmission Date: 20240110
  Serious: Yes (Other)
  Sender: FDA-Public Use
  Company Number: CA-SANDOZ-SDZ2023CA037758

PATIENT
  Sex: Male

DRUGS (6)
  1. EZETIMIBE [Suspect]
     Active Substance: EZETIMIBE
     Indication: Arteriosclerosis
     Dosage: 10 MG, QD
     Route: 065
  2. FENOFIBRATE [Suspect]
     Active Substance: FENOFIBRATE
     Indication: Arteriosclerosis
     Dosage: 200 MG, QD
     Route: 065
  3. IRBESARTAN [Suspect]
     Active Substance: IRBESARTAN
     Indication: Product used for unknown indication
     Dosage: UNK
     Route: 065
  4. PREGABALIN [Suspect]
     Active Substance: PREGABALIN
     Indication: Product used for unknown indication
     Dosage: 25 MG AT BEDTIME
     Route: 065
  5. ROSUVASTATIN [Suspect]
     Active Substance: ROSUVASTATIN
     Indication: Arteriosclerosis
     Dosage: 40 MG, QD
     Route: 065
  6. WARFARIN [Suspect]
     Active Substance: WARFARIN
     Indication: Product used for unknown indication
     Dosage: 3 MG, QD
     Route: 065

REACTIONS (8)
  - Cerebellar infarction [Unknown]
  - Cerebral atrophy [Unknown]
  - Carotid artery stenosis [Unknown]
  - Hypercalcaemia [Unknown]
  - Arteriosclerosis [Unknown]
  - Muscular weakness [Unknown]
  - Coordination abnormal [Unknown]
  - Drug ineffective [Unknown]
